FAERS Safety Report 5940048-9 (Version None)
Quarter: 2008Q4

REPORT INFORMATION
  Report Type: 
  Country: None (occurrence: None)
  Receive Date: 20081104
  Receipt Date: 20081027
  Transmission Date: 20090506
  Serious: Yes (Hospitalization, Other)
  Sender: FDA-Public Use
  Company Number: PHHY2008BR26033

PATIENT
  Sex: Female
  Weight: 62 kg

DRUGS (6)
  1. TEGRETOL [Suspect]
     Dosage: 200 MG, TWO TABLETS
     Route: 048
  2. TEGRETOL [Suspect]
     Dosage: 3 TABLETS DAILY
     Route: 048
  3. CHEMOTHERAPEUTICS NOS [Concomitant]
  4. DEPAKENE [Concomitant]
  5. TRILEPTAL [Concomitant]
     Dosage: 1 TABLET
     Route: 048
  6. TRILEPTAL [Concomitant]
     Dosage: 6 TABLETS
     Route: 048

REACTIONS (5)
  - CONVULSION [None]
  - LEUKAEMIA [None]
  - PLATELET DISORDER [None]
  - TREMOR [None]
  - URINARY INCONTINENCE [None]
